APPROVED DRUG PRODUCT: MALARONE PEDIATRIC
Active Ingredient: ATOVAQUONE; PROGUANIL HYDROCHLORIDE
Strength: 62.5MG;25MG
Dosage Form/Route: TABLET;ORAL
Application: N021078 | Product #002 | TE Code: AB
Applicant: GLAXOSMITHKLINE
Approved: Jul 14, 2000 | RLD: Yes | RS: No | Type: RX